FAERS Safety Report 4871701-6 (Version None)
Quarter: 2005Q4

REPORT INFORMATION
  Report Type: 
  Country: None (occurrence: None)
  Receive Date: 20051230
  Receipt Date: 20051128
  Transmission Date: 20060501
  Serious: Yes (Hospitalization)
  Sender: FDA-Public Use
  Company Number: 2005149657

PATIENT
  Age: 56 Year
  Sex: Female
  Weight: 51.6 kg

DRUGS (6)
  1. IRINOTECAN HCL [Suspect]
     Indication: OVARIAN CANCER
     Dosage: 80 MG (INTERMITTENT) , INTRAVENOUS
     Route: 042
     Dates: start: 20050225, end: 20050419
  2. DOCETAXEL              (DOCETAXEL) [Suspect]
     Indication: OVARIAN CANCER
     Dosage: INTRAVENOUS; 160 MG (80 MG, TWICE DAILY THREE TIMES A WEEK) INTRAVENOUS
     Route: 042
     Dates: start: 20040608, end: 20040907
  3. DOCETAXEL              (DOCETAXEL) [Suspect]
     Indication: OVARIAN CANCER
     Dosage: INTRAVENOUS; 160 MG (80 MG, TWICE DAILY THREE TIMES A WEEK) INTRAVENOUS
     Route: 042
     Dates: start: 20050304, end: 20050419
  4. WARFARIN SODIUM [Concomitant]
  5. CEFOTIAM HYDROCHLORIDE [Concomitant]
  6. NEU-UP (NARTOGRASTIM) [Concomitant]

REACTIONS (1)
  - INTERSTITIAL LUNG DISEASE [None]
